FAERS Safety Report 9869932 (Version 1)
Quarter: 2014Q1

REPORT INFORMATION
  Report Type: Spontaneous
  Country: US (occurrence: None)
  Receive Date: 20140203
  Receipt Date: 20140203
  Transmission Date: 20141002
  Serious: Yes (Other)
  Sender: FDA-Public Use
  Company Number: None

PATIENT
  Age: 63 Year
  Sex: Female
  Weight: 73.2 kg

DRUGS (2)
  1. ZYVOX [Suspect]
     Indication: SEPSIS
     Route: 042
     Dates: start: 20131130, end: 20131201
  2. ZYVOX [Suspect]
     Indication: CELLULITIS
     Route: 042
     Dates: start: 20131130, end: 20131201

REACTIONS (2)
  - Rhabdomyolysis [None]
  - Pain in extremity [None]
